FAERS Safety Report 15806565 (Version 2)
Quarter: 2019Q1

REPORT INFORMATION
  Report Type: Spontaneous
  Country: US (occurrence: US)
  Receive Date: 20190110
  Receipt Date: 20190213
  Transmission Date: 20190417
  Serious: Yes (Hospitalization)
  Sender: FDA-Public Use
  Company Number: US-ASTRAZENECA-2019SE01016

PATIENT
  Age: 32391 Day
  Sex: Female
  Weight: 46.3 kg

DRUGS (2)
  1. TAGRISSO [Suspect]
     Active Substance: OSIMERTINIB
     Indication: NON-SMALL CELL LUNG CANCER
     Route: 048
     Dates: start: 20181221, end: 201812
  2. MEGASTROL [Concomitant]
     Indication: APPETITE DISORDER
     Route: 048
     Dates: start: 20181213

REACTIONS (5)
  - Decreased appetite [Unknown]
  - Malignant neoplasm progression [Not Recovered/Not Resolved]
  - Faeces discoloured [Unknown]
  - Weight decreased [Unknown]
  - Dyspepsia [Unknown]

NARRATIVE: CASE EVENT DATE: 20181230
